FAERS Safety Report 6025266-6 (Version None)
Quarter: 2008Q4

REPORT INFORMATION
  Report Type: 
  Country: None (occurrence: None)
  Receive Date: 20081231
  Receipt Date: 20081218
  Transmission Date: 20090506
  Serious: Yes (Other)
  Sender: FDA-Public Use
  Company Number: PHHY2008BE32062

PATIENT
  Age: 75 Year
  Sex: Female

DRUGS (4)
  1. DIOVAN HCT [Suspect]
     Indication: HYPERTENSION
     Dosage: 160/12.5 MG DAILY
     Dates: start: 20020101
  2. ASPIRIN [Concomitant]
  3. DAFALGAN [Concomitant]
  4. CEDOCARD [Concomitant]

REACTIONS (7)
  - BLOOD PRESSURE INCREASED [None]
  - CERVIX CARCINOMA [None]
  - COLECTOMY [None]
  - COLOSTOMY [None]
  - FEMALE GENITAL TRACT FISTULA [None]
  - HYPERTENSION [None]
  - RADIOTHERAPY [None]
